FAERS Safety Report 7352053-9 (Version None)
Quarter: 2011Q1

REPORT INFORMATION
  Report Type: 
  Country: None (occurrence: None)
  Receive Date: 20110304
  Receipt Date: 20110222
  Transmission Date: 20110831
  Serious: Yes (Death, Hospitalization)
  Sender: FDA-Public Use
  Company Number: 2007-00571

PATIENT
  Age: 65 Year
  Sex: Female
  Weight: 53 kg

DRUGS (9)
  1. VELCADE [Suspect]
     Indication: MULTIPLE MYELOMA
     Dosage: 1.30 MG/M2, INTRAVENOUS, 1.0 MG, INTRAVENOUS
     Route: 042
     Dates: start: 20070216, end: 20070330
  2. VELCADE [Suspect]
     Indication: MULTIPLE MYELOMA
     Dosage: 1.30 MG/M2, INTRAVENOUS, 1.0 MG, INTRAVENOUS
     Route: 042
     Dates: start: 20070413, end: 20070413
  3. COTRIM [Concomitant]
  4. DECADRON [Suspect]
     Indication: MULTIPLE MYELOMA
     Dosage: 20.00 MG, INTRAVENOUS
     Route: 042
     Dates: start: 20070216, end: 20070227
  5. (TEPRENONE) MAGNESIUM OXIDE (MAGNESIUM OXIDE) [Concomitant]
  6. ITRIZOLE (ITRACONAZOLE) [Concomitant]
  7. ONE-ALPHA (ALFACALCIDOL) [Concomitant]
  8. ZANTAC [Concomitant]
  9. SELBEX [Concomitant]

REACTIONS (13)
  - NEOPLASM MALIGNANT [None]
  - DUODENAL ULCER [None]
  - MULTIPLE MYELOMA [None]
  - MALAISE [None]
  - VOMITING [None]
  - DYSGEUSIA [None]
  - ASPARTATE AMINOTRANSFERASE INCREASED [None]
  - DUODENAL ULCER HAEMORRHAGE [None]
  - NEUROPATHY PERIPHERAL [None]
  - ALANINE AMINOTRANSFERASE INCREASED [None]
  - THROMBOCYTOPENIA [None]
  - RASH [None]
  - NAUSEA [None]
